FAERS Safety Report 4608853-9 (Version None)
Quarter: 2005Q1

REPORT INFORMATION
  Report Type: 
  Country: None (occurrence: None)
  Receive Date: 20050315
  Receipt Date: 20050117
  Transmission Date: 20050727
  Serious: Yes (Hospitalization)
  Sender: FDA-Public Use
  Company Number: DE-GLAXOSMITHKLINE-D0045668A

PATIENT
  Age: 2 Year
  Sex: Male
  Weight: 11.9 kg

DRUGS (1)
  1. SULTANOL [Suspect]
     Route: 048

REACTIONS (2)
  - ACCIDENTAL EXPOSURE [None]
  - PSYCHOMOTOR HYPERACTIVITY [None]
